FAERS Safety Report 9793319 (Version 2)
Quarter: 2014Q1

REPORT INFORMATION
  Report Type: Spontaneous
  Country: US (occurrence: US)
  Receive Date: 20140102
  Receipt Date: 20140102
  Transmission Date: 20141002
  Serious: No
  Sender: FDA-Public Use
  Company Number: US-MALLINCKRODT-T201304495

PATIENT
  Age: 8 Year
  Sex: Male
  Weight: 21.77 kg

DRUGS (7)
  1. METHYLPHENIDATE HYDROCHLORIDE EXTENDED RELEASE TABLETS [Suspect]
     Indication: OPPOSITIONAL DEFIANT DISORDER
     Dosage: 27 MG, QD
     Route: 048
     Dates: start: 20130910, end: 20130930
  2. METHYLPHENIDATE HYDROCHLORIDE EXTENDED RELEASE TABLETS [Suspect]
     Indication: ATTENTION DEFICIT/HYPERACTIVITY DISORDER
  3. METHYLPHENIDATE [Concomitant]
     Indication: OPPOSITIONAL DEFIANT DISORDER
     Dosage: 27 MG, QD
     Route: 048
     Dates: start: 2011, end: 20130910
  4. METHYLPHENIDATE [Concomitant]
     Indication: ATTENTION DEFICIT/HYPERACTIVITY DISORDER
  5. CLONIDINE [Concomitant]
     Indication: SLEEP DISORDER
     Dosage: 0.1 MG, 1 TABLET QHS
     Route: 048
  6. RITALIN [Concomitant]
     Indication: OPPOSITIONAL DEFIANT DISORDER
     Dosage: 5 MG, 1 TAB IN AFTERNOON
     Route: 048
  7. RITALIN [Concomitant]
     Indication: ATTENTION DEFICIT/HYPERACTIVITY DISORDER

REACTIONS (3)
  - Impulsive behaviour [Recovered/Resolved]
  - Anger [Recovered/Resolved]
  - Drug ineffective [Recovered/Resolved]
